FAERS Safety Report 10156478 (Version 1)
Quarter: 2014Q2

REPORT INFORMATION
  Report Type: Spontaneous
  Country: US (occurrence: None)
  Receive Date: 20140410
  Receipt Date: 20140410
  Transmission Date: 20141212
  Serious: Yes (Other)
  Sender: FDA-Public Use
  Company Number: A14-014

PATIENT
  Age: 12 Year
  Sex: Male
  Weight: 37.2 kg

DRUGS (1)
  1. ALLERGENIC EXTRACT [Suspect]
     Indication: IMMUNE TOLERANCE INDUCTION
     Dosage: MAINTENANCE
     Dates: start: 20140226

REACTIONS (2)
  - Urticaria [None]
  - Wheezing [None]
